FAERS Safety Report 19674623 (Version 2)
Quarter: 2021Q3

REPORT INFORMATION
  Report Type: Other
  Country: US (occurrence: US)
  Receive Date: 20210809
  Receipt Date: 20210810
  Transmission Date: 20211014
  Serious: Yes (Life-Threatening, Other)
  Sender: FDA-Public Use
  Company Number: US-ROCHE-2883274

PATIENT
  Sex: Female

DRUGS (3)
  1. XOLAIR [Suspect]
     Active Substance: OMALIZUMAB
     Indication: HYPERSENSITIVITY
  2. VALIUM [Suspect]
     Active Substance: DIAZEPAM
     Indication: PRODUCT USED FOR UNKNOWN INDICATION
     Route: 065
  3. XOLAIR [Suspect]
     Active Substance: OMALIZUMAB
     Indication: URTICARIA CHRONIC
     Route: 065

REACTIONS (14)
  - Epilepsy [Not Recovered/Not Resolved]
  - Blood immunoglobulin E increased [Unknown]
  - Anaphylactic reaction [Recovered/Resolved]
  - Asthma [Unknown]
  - Dizziness [Unknown]
  - Swelling face [Unknown]
  - Cough [Unknown]
  - Head injury [Recovering/Resolving]
  - Fall [Unknown]
  - Swollen tongue [Unknown]
  - Vomiting [Unknown]
  - Pain in extremity [Unknown]
  - Urticaria chronic [Unknown]
  - Ill-defined disorder [Unknown]
